FAERS Safety Report 15852492 (Version 1)
Quarter: 2018Q4

REPORT INFORMATION
  Report Type: Spontaneous
  Country: US (occurrence: US)
  Receive Date: 20181228
  Receipt Date: 20181228
  Transmission Date: 20190205
  Serious: No
  Sender: FDA-Public Use
  Company Number: None

PATIENT
  Age: 87 Year
  Sex: Male
  Weight: 79.38 kg

DRUGS (1)
  1. FORTEO [Suspect]
     Active Substance: TERIPARATIDE
     Indication: OSTEOPOROTIC FRACTURE
     Dosage: INJECT 20MCG SUBCUTANEOUSLY EVERY DAY AS DIRECTED?
     Route: 058
     Dates: start: 201706

REACTIONS (1)
  - Tooth infection [None]
